FAERS Safety Report 20970050 (Version 4)
Quarter: 2024Q2

REPORT INFORMATION
  Report Type: Spontaneous
  Country: US (occurrence: US)
  Receive Date: 20220616
  Receipt Date: 20240603
  Transmission Date: 20240715
  Serious: Yes (Hospitalization, Other)
  Sender: FDA-Public Use
  Company Number: US-SA-SAC20220603001682

PATIENT
  Age: 14 Year
  Sex: Male

DRUGS (8)
  1. ELOCTATE [Suspect]
     Active Substance: EFMOROCTOCOG ALFA
     Indication: Factor VIII deficiency
     Dosage: 1500 U, PRN
     Route: 042
     Dates: start: 201710
  2. ELOCTATE [Suspect]
     Active Substance: EFMOROCTOCOG ALFA
     Indication: Factor VIII deficiency
     Dosage: 1500 U, PRN
     Route: 042
     Dates: start: 201710
  3. ELOCTATE [Suspect]
     Active Substance: EFMOROCTOCOG ALFA
     Dosage: 2500 IU, PRN
     Route: 042
     Dates: start: 2018
  4. ELOCTATE [Suspect]
     Active Substance: EFMOROCTOCOG ALFA
     Dosage: 2500 IU, PRN
     Route: 042
     Dates: start: 2018
  5. ELOCTATE [Suspect]
     Active Substance: EFMOROCTOCOG ALFA
     Dosage: 300 U, PRN
     Route: 042
  6. ELOCTATE [Suspect]
     Active Substance: EFMOROCTOCOG ALFA
     Dosage: 300 U, PRN
     Route: 042
  7. AMICAR [Suspect]
     Active Substance: AMINOCAPROIC ACID
     Dosage: UNK
  8. HEMLIBRA [Concomitant]
     Active Substance: EMICIZUMAB-KXWH

REACTIONS (7)
  - Muscle haemorrhage [Not Recovered/Not Resolved]
  - Epistaxis [Unknown]
  - Abdominal discomfort [Unknown]
  - Infection [Unknown]
  - Epistaxis [Not Recovered/Not Resolved]
  - Haemorrhage [Unknown]
  - Arthralgia [Unknown]

NARRATIVE: CASE EVENT DATE: 20240205
